FAERS Safety Report 10749368 (Version 1)
Quarter: 2015Q1

REPORT INFORMATION
  Report Type: Spontaneous
  Country: US (occurrence: None)
  Receive Date: 20150128
  Receipt Date: 20150128
  Transmission Date: 20150721
  Serious: Yes (Hospitalization)
  Sender: FDA-Public Use
  Company Number: None

PATIENT
  Age: 79 Year
  Sex: Male
  Weight: 74.84 kg

DRUGS (20)
  1. PRILOSEC [Concomitant]
     Active Substance: OMEPRAZOLE MAGNESIUM
  2. SERTRALINE [Concomitant]
     Active Substance: SERTRALINE HYDROCHLORIDE
  3. CO-Q10 [Concomitant]
  4. ZINC [Concomitant]
     Active Substance: ZINC\ZINC CHLORIDE
  5. FINASTERIDE. [Concomitant]
     Active Substance: FINASTERIDE
  6. ENALAPRIL [Concomitant]
     Active Substance: ENALAPRIL
  7. BIVTAMIN C [Concomitant]
  8. METOPROLOL [Concomitant]
     Active Substance: METOPROLOL
  9. PROBIOTIC [Concomitant]
     Active Substance: PROBIOTICS NOS
  10. BRENTUXIMAB VEDOTIN [Suspect]
     Active Substance: BRENTUXIMAB VEDOTIN
     Indication: DIFFUSE LARGE B-CELL LYMPHOMA
     Dosage: DAY 1
     Route: 042
     Dates: start: 20150107
  11. AMBIEN [Concomitant]
     Active Substance: ZOLPIDEM TARTRATE
  12. GLUCOSAMINE [Concomitant]
     Active Substance: GLUCOSAMINE
  13. VITAMIN B12 [Concomitant]
     Active Substance: CYANOCOBALAMIN
  14. VITAMIN D [Concomitant]
     Active Substance: CHOLECALCIFEROL
  15. LENALIDOMIDE [Suspect]
     Active Substance: LENALIDOMIDE
     Indication: DIFFUSE LARGE B-CELL LYMPHOMA
     Dosage: DAYS 1-21
     Route: 048
     Dates: start: 20150107, end: 20150117
  16. CALCIUM [Concomitant]
     Active Substance: CALCIUM
  17. ACYCLOVIR. [Concomitant]
     Active Substance: ACYCLOVIR
  18. SIMVASTATIN. [Concomitant]
     Active Substance: SIMVASTATIN
  19. MULTIVITAMIN [Concomitant]
     Active Substance: VITAMINS
  20. ASA [Concomitant]
     Active Substance: ASPIRIN

REACTIONS (3)
  - White blood cell count decreased [None]
  - Haemoglobin decreased [None]
  - Febrile neutropenia [None]

NARRATIVE: CASE EVENT DATE: 20150123
